FAERS Safety Report 6357809-7 (Version None)
Quarter: 2009Q3

REPORT INFORMATION
  Report Type: 
  Country: None (occurrence: None)
  Receive Date: 20090911
  Receipt Date: 20090902
  Transmission Date: 20100115
  Serious: Yes (Other)
  Sender: FDA-Public Use
  Company Number: 2007EU002031

PATIENT
  Age: 38 Year
  Sex: Female

DRUGS (8)
  1. TACROLIMUS [Suspect]
     Indication: TRANSPLANT
     Dosage: ORAL
     Route: 048
     Dates: start: 20051127
  2. PREDNISONE TAB [Concomitant]
  3. MYCOPHENOLATE MOFETIL [Concomitant]
  4. TACROLIMUS [Concomitant]
  5. CLOBETASOL (CLOBETASOL) [Concomitant]
  6. SIROLIMUS (SIROLIMUS) [Concomitant]
  7. VALACYCLOVIR [Concomitant]
  8. ACYCLOVIR [Concomitant]

REACTIONS (4)
  - ORAL HERPES [None]
  - RENAL FAILURE [None]
  - THROMBOTIC MICROANGIOPATHY [None]
  - TRANSPLANT REJECTION [None]
